FAERS Safety Report 13924679 (Version 1)
Quarter: 2017Q3

REPORT INFORMATION
  Report Type: Spontaneous
  Country: US (occurrence: US)
  Receive Date: 20170831
  Receipt Date: 20170831
  Transmission Date: 20171127
  Serious: Yes (Other)
  Sender: FDA-Public Use
  Company Number: US-ASTELLAS-2017US034286

PATIENT
  Sex: Female

DRUGS (1)
  1. MYRBETRIQ [Suspect]
     Active Substance: MIRABEGRON
     Indication: PRODUCT USED FOR UNKNOWN INDICATION
     Dosage: UNK, UNKNOWN FREQ.
     Route: 065

REACTIONS (7)
  - Vitamin D deficiency [Unknown]
  - Lung disorder [Unknown]
  - Blood pressure abnormal [Unknown]
  - Blood cholesterol [Unknown]
  - Sleep apnoea syndrome [Unknown]
  - Ill-defined disorder [Unknown]
  - Heart transplant [Unknown]
